FAERS Safety Report 7979264-3 (Version None)
Quarter: 2011Q4

REPORT INFORMATION
  Report Type: 
  Country: None (occurrence: None)
  Receive Date: 20111214
  Receipt Date: 20111214
  Transmission Date: 20120403
  Serious: Yes (Other)
  Sender: FDA-Public Use
  Company Number: None

PATIENT
  Sex: Female
  Weight: 32.205 kg

DRUGS (2)
  1. ABILIFY [Suspect]
     Indication: AGGRESSION
     Dosage: 5MG
     Route: 048
     Dates: start: 20111110, end: 20111211
  2. ABILIFY [Suspect]
     Indication: BIPOLAR DISORDER
     Dosage: 5MG
     Route: 048
     Dates: start: 20111110, end: 20111211

REACTIONS (7)
  - TIC [None]
  - DYSKINESIA [None]
  - EYE DISORDER [None]
  - SENSATION OF HEAVINESS [None]
  - MUSCULAR WEAKNESS [None]
  - HEART RATE INCREASED [None]
  - MUSCLE TWITCHING [None]
